FAERS Safety Report 8920140 (Version 1)
Quarter: 2012Q4

REPORT INFORMATION
  Report Type: 
  Country: US (occurrence: US)
  Receive Date: 20121121
  Receipt Date: 20121121
  Transmission Date: 20130627
  Serious: No
  Sender: FDA-Public Use
  Company Number: US-PFIZER INC-2012292137

PATIENT
  Age: 45 Year
  Sex: Female
  Weight: 68.03 kg

DRUGS (1)
  1. ADVIL MIGRAINE [Suspect]
     Indication: MIGRAINE
     Dosage: 200 mg, two times a day
     Route: 048
     Dates: start: 201203

REACTIONS (4)
  - Drug ineffective [Unknown]
  - Menstruation irregular [Not Recovered/Not Resolved]
  - Malaise [Unknown]
  - Nausea [Unknown]
